FAERS Safety Report 14031087 (Version 1)
Quarter: 2017Q4

REPORT INFORMATION
  Report Type: Spontaneous
  Country: DO (occurrence: DO)
  Receive Date: 20171002
  Receipt Date: 20171002
  Transmission Date: 20180321
  Serious: Yes (Hospitalization, Other)
  Sender: FDA-Public Use
  Company Number: DO-JNJFOC-20170923148

PATIENT
  Age: 84 Year
  Sex: Male
  Weight: 79.38 kg

DRUGS (15)
  1. BICALUTAMIDE. [Concomitant]
     Active Substance: BICALUTAMIDE
     Route: 065
     Dates: start: 20170401
  2. PLAVIX [Concomitant]
     Active Substance: CLOPIDOGREL BISULFATE
     Route: 065
  3. TAMSULON [Concomitant]
     Route: 065
     Dates: start: 20170401
  4. BETAHISTINE [Concomitant]
     Active Substance: BETAHISTINE
     Route: 065
  5. URGINAL UD [Concomitant]
     Route: 065
     Dates: start: 20170401
  6. PREDNISONE. [Concomitant]
     Active Substance: PREDNISONE
     Route: 065
     Dates: start: 20170404
  7. CRESTOR [Concomitant]
     Active Substance: ROSUVASTATIN CALCIUM
     Route: 065
  8. PREDNISONE. [Concomitant]
     Active Substance: PREDNISONE
     Indication: PROSTATE CANCER METASTATIC
     Dates: start: 20170912
  9. CALCIUM [Concomitant]
     Active Substance: CALCIUM
     Route: 065
     Dates: start: 20170217
  10. ZYTIGA [Suspect]
     Active Substance: ABIRATERONE ACETATE
     Indication: PROSTATE CANCER METASTATIC
     Dosage: 2 HOURS AFTER BREAKFAST
     Route: 048
     Dates: start: 20170724, end: 20170918
  11. GLIMEPIRIDE. [Concomitant]
     Active Substance: GLIMEPIRIDE
     Route: 065
  12. VITAMIN D [Concomitant]
     Active Substance: CHOLECALCIFEROL
     Route: 065
     Dates: start: 20170217
  13. CANDERSIL [Concomitant]
     Route: 065
  14. METFORMIN [Concomitant]
     Active Substance: METFORMIN HYDROCHLORIDE
     Route: 065
  15. FERROCYTE [Concomitant]
     Route: 065

REACTIONS (4)
  - Hyperglycaemia [Unknown]
  - Acute kidney injury [Unknown]
  - Asthenia [Unknown]
  - Acute coronary syndrome [Unknown]

NARRATIVE: CASE EVENT DATE: 20170912
